FAERS Safety Report 15749935 (Version 1)
Quarter: 2018Q4

REPORT INFORMATION
  Report Type: Report from Study
  Country: US (occurrence: US)
  Receive Date: 20181221
  Receipt Date: 20181221
  Transmission Date: 20190205
  Serious: Yes (Death, Hospitalization)
  Sender: FDA-Public Use
  Company Number: US-TAIHO ONCOLOGY  INC-EU-2018-02029

PATIENT
  Age: 76 Year
  Sex: Male
  Weight: 80.81 kg

DRUGS (12)
  1. CLOPIDOGREL [Concomitant]
     Active Substance: CLOPIDOGREL BISULFATE
     Dosage: NI
  2. ATORVASTATIN [Concomitant]
     Active Substance: ATORVASTATIN
     Dosage: NI
  3. FINASTERIDE. [Concomitant]
     Active Substance: FINASTERIDE
     Dosage: NI
  4. LONSURF [Suspect]
     Active Substance: TIPIRACIL HYDROCHLORIDE\TRIFLURIDINE
     Indication: COLON CANCER
     Dosage: CURRENT CYCLE 5 STARTED ON AN UNKNOWN DAY
     Route: 048
     Dates: start: 20180509, end: 2018
  5. AMLODIPINE [Concomitant]
     Active Substance: AMLODIPINE BESYLATE
     Dosage: NI
  6. ASPIRIN. [Concomitant]
     Active Substance: ASPIRIN
     Dosage: NI
  7. FUROSEMIDE. [Concomitant]
     Active Substance: FUROSEMIDE
     Dosage: NI
  8. LEVOTHYROXINE. [Concomitant]
     Active Substance: LEVOTHYROXINE
     Dosage: NI
  9. SIMVASTATIN. [Concomitant]
     Active Substance: SIMVASTATIN
     Dosage: NI
  10. VALSARTAN. [Concomitant]
     Active Substance: VALSARTAN
     Dosage: NI
  11. VITAMIN C [Concomitant]
     Active Substance: ASCORBIC ACID
     Dosage: NI
  12. FERROUS SULFATE. [Concomitant]
     Active Substance: FERROUS SULFATE
     Dosage: NI

REACTIONS (2)
  - Pulmonary embolism [Unknown]
  - Death [Fatal]

NARRATIVE: CASE EVENT DATE: 20181107
